FAERS Safety Report 6755415-3 (Version None)
Quarter: 2010Q2

REPORT INFORMATION
  Report Type: 
  Country: None (occurrence: None)
  Receive Date: 20100604
  Receipt Date: 20100528
  Transmission Date: 20101027
  Serious: Yes (Other)
  Sender: FDA-Public Use
  Company Number: US-CEPHALON-2010002997

PATIENT
  Sex: Female

DRUGS (11)
  1. FENTORA [Suspect]
     Indication: BACK PAIN
     Route: 002
     Dates: start: 20050101
  2. FENTORA [Suspect]
     Indication: SCAR PAIN
     Route: 002
  3. FENTORA [Suspect]
     Route: 002
     Dates: start: 20080101
  4. FENTORA [Suspect]
     Route: 002
     Dates: start: 20080101
  5. FENTORA [Suspect]
     Route: 002
     Dates: start: 20100404
  6. DURAGESIC-100 [Concomitant]
     Route: 062
     Dates: start: 19950101
  7. LYRICA [Concomitant]
     Dates: start: 20050101
  8. ARIMIDEX [Concomitant]
     Dates: start: 20090101
  9. REMERON [Concomitant]
     Dates: start: 20050101
  10. COMBIVENT [Concomitant]
     Dates: start: 20050101
  11. NASONEX [Concomitant]
     Dates: start: 19950101

REACTIONS (7)
  - ABDOMINAL PAIN [None]
  - BREAST CANCER [None]
  - CHILLS [None]
  - DRUG TOLERANCE [None]
  - DRUG WITHDRAWAL SYNDROME [None]
  - HYPERHIDROSIS [None]
  - NAUSEA [None]
